FAERS Safety Report 6405219-6 (Version None)
Quarter: 2009Q4

REPORT INFORMATION
  Report Type: 
  Country: None (occurrence: None)
  Receive Date: 20091019
  Receipt Date: 20091014
  Transmission Date: 20100525
  Serious: Yes (Death, Hospitalization, Other)
  Sender: FDA-Public Use
  Company Number: PHHY2009BR44351

PATIENT
  Sex: Male

DRUGS (2)
  1. FORASEQ [Suspect]
     Indication: ASTHMA
     Dosage: INHALATION OF 1 CAPSULE OF EACH TREATMENT, TWICE A DAY
  2. MARIJUANA [Concomitant]

REACTIONS (5)
  - CONDITION AGGRAVATED [None]
  - DEATH [None]
  - INFLUENZA [None]
  - PNEUMONIA [None]
  - TUBERCULOSIS [None]
